FAERS Safety Report 4738070-3 (Version None)
Quarter: 2005Q3

REPORT INFORMATION
  Report Type: 
  Country: None (occurrence: None)
  Receive Date: 20050805
  Receipt Date: 20050805
  Transmission Date: 20060218
  Serious: No
  Sender: FDA-Public Use
  Company Number: None

PATIENT
  Age: 73 Year
  Sex: Male

DRUGS (1)
  1. PROSTIGMIN [Suspect]
     Indication: MYASTHENIA GRAVIS
     Dosage: 10 MG /10 ML SALINE

REACTIONS (2)
  - BRADYCARDIA [None]
  - BRONCHOSPASM [None]
